FAERS Safety Report 9938633 (Version 4)
Quarter: 2016Q2

REPORT INFORMATION
  Report Type: Spontaneous
  Country: FR (occurrence: FR)
  Receive Date: 20140303
  Receipt Date: 20160530
  Transmission Date: 20160815
  Serious: Yes (Life-Threatening, Hospitalization, Other)
  Sender: FDA-Public Use
  Company Number: FR-JNJFOC-20140211980

PATIENT
  Age: 15 Year
  Sex: Male

DRUGS (8)
  1. RISPERDAL [Suspect]
     Active Substance: RISPERIDONE
     Indication: PSYCHOTIC DISORDER
     Route: 048
     Dates: start: 20131223, end: 20140116
  2. ABILIFY [Suspect]
     Active Substance: ARIPIPRAZOLE
     Indication: PRODUCT USED FOR UNKNOWN INDICATION
     Route: 048
     Dates: start: 20130913, end: 20131231
  3. LEPONEX [Suspect]
     Active Substance: CLOZAPINE
     Indication: PRODUCT USED FOR UNKNOWN INDICATION
     Route: 049
     Dates: start: 20140122, end: 20140125
  4. NORDAZ [Concomitant]
     Active Substance: NORDAZEPAM
     Indication: PSYCHOTIC DISORDER
     Route: 065
     Dates: start: 20130607
  5. PARKINANE [Concomitant]
     Active Substance: TRIHEXYPHENIDYL HYDROCHLORIDE
     Indication: PSYCHOTIC DISORDER
     Route: 065
     Dates: start: 20130607
  6. RISPERDAL [Suspect]
     Active Substance: RISPERIDONE
     Indication: PSYCHOTIC DISORDER
     Route: 048
     Dates: start: 20130607, end: 20131222
  7. RISPERDAL [Suspect]
     Active Substance: RISPERIDONE
     Indication: PSYCHOTIC DISORDER
     Route: 048
     Dates: start: 20140118, end: 20140122
  8. CLOMIPRAMINE [Suspect]
     Active Substance: CLOMIPRAMINE
     Indication: HALLUCINATION
     Route: 065
     Dates: start: 20130628, end: 20130913

REACTIONS (9)
  - Altered state of consciousness [Unknown]
  - Dyskinesia [Recovering/Resolving]
  - Neurological symptom [Recovering/Resolving]
  - Rhabdomyolysis [Recovered/Resolved]
  - Neuroleptic malignant syndrome [Unknown]
  - Dialysis [Unknown]
  - Leukocytosis [Unknown]
  - Agitation [Recovering/Resolving]
  - Ocular hypertension [Unknown]

NARRATIVE: CASE EVENT DATE: 2013
